FAERS Safety Report 8990034 (Version 3)
Quarter: 2013Q2

REPORT INFORMATION
  Report Type: Spontaneous
  Country: US (occurrence: US)
  Receive Date: 20121228
  Receipt Date: 20130506
  Transmission Date: 20140414
  Serious: Yes (Other)
  Sender: FDA-Public Use
  Company Number: US-AMGEN-USASP2012077108

PATIENT
  Age: 58 Year
  Sex: Female
  Weight: 77.1 kg

DRUGS (3)
  1. PROLIA [Suspect]
     Indication: OSTEOPOROSIS
     Dosage: UNK UNK, Q6MO
     Dates: start: 201107
  2. PROLIA [Suspect]
     Dosage: 60 MG, UNK
     Route: 058
     Dates: start: 20120424
  3. PROLIA [Suspect]
     Dosage: 60 MG, UNK
     Route: 058
     Dates: start: 20120618

REACTIONS (1)
  - Osteonecrosis of jaw [Not Recovered/Not Resolved]
